FAERS Safety Report 14446108 (Version 1)
Quarter: 2018Q1

REPORT INFORMATION
  Report Type: Spontaneous
  Country: GB (occurrence: GB)
  Receive Date: 20180126
  Receipt Date: 20180126
  Transmission Date: 20180509
  Serious: Yes (Disabling, Other)
  Sender: FDA-Public Use
  Company Number: GB-ASTRAZENECA-2017SF10127

PATIENT
  Age: 69 Year
  Sex: Male
  Weight: 88.3 kg

DRUGS (1)
  1. BYDUREON [Suspect]
     Active Substance: EXENATIDE
     Indication: TYPE 2 DIABETES MELLITUS
     Dosage: 2.0MG UNKNOWN
     Route: 058
     Dates: start: 20150209, end: 20171116

REACTIONS (6)
  - Angioedema [Unknown]
  - Erythema [Unknown]
  - Periorbital oedema [Unknown]
  - Hypersensitivity [Unknown]
  - Face oedema [Recovering/Resolving]
  - Rash [Unknown]
